FAERS Safety Report 7582662-3 (Version None)
Quarter: 2011Q2

REPORT INFORMATION
  Report Type: 
  Country: None (occurrence: None)
  Receive Date: 20110630
  Receipt Date: 20110627
  Transmission Date: 20111010
  Serious: No
  Sender: FDA-Public Use
  Company Number: US-PFIZER INC-2011143528

PATIENT
  Sex: Female
  Weight: 76.644 kg

DRUGS (6)
  1. SYNTHROID [Concomitant]
     Dosage: UNK
  2. ZIAC [Concomitant]
     Dosage: 6.5/5 MG, DAILY
  3. FLAXSEED OIL [Concomitant]
     Dosage: UNK
  4. CELEBREX [Suspect]
     Indication: SURGERY
     Dosage: UNK
     Route: 048
     Dates: start: 20100801, end: 20101101
  5. WELLBUTRIN [Concomitant]
     Dosage: 300 MG, DAILY
  6. SERTRALINE HYDROCHLORIDE [Concomitant]
     Dosage: 100 MG, DAILY

REACTIONS (1)
  - LIVER FUNCTION TEST ABNORMAL [None]
